FAERS Safety Report 20327649 (Version 4)
Quarter: 2022Q2

REPORT INFORMATION
  Report Type: Spontaneous
  Country: None (occurrence: PT)
  Receive Date: 20220112
  Receipt Date: 20220517
  Transmission Date: 20220721
  Serious: Yes (Other)
  Sender: FDA-Public Use
  Company Number: PT-AKCEA THERAPEUTICS, INC.-2022IS001005

PATIENT
  Age: 43 Year
  Sex: Female

DRUGS (5)
  1. TEGSEDI [Suspect]
     Active Substance: INOTERSEN SODIUM
     Indication: Product used for unknown indication
     Route: 065
     Dates: start: 20210415, end: 20211118
  2. DEVICE [Suspect]
     Active Substance: DEVICE
  3. GABAPENTIN [Concomitant]
     Active Substance: GABAPENTIN
     Route: 065
  4. OMEPRAZOLE [Concomitant]
     Active Substance: OMEPRAZOLE
     Route: 065
  5. DAGRAVIT /01709701/ [Concomitant]
     Route: 065

REACTIONS (9)
  - Autoimmune hypothyroidism [Not Recovered/Not Resolved]
  - Hypersensitivity [Unknown]
  - Anti-thyroid antibody increased [Unknown]
  - Blood thyroid stimulating hormone increased [Recovering/Resolving]
  - Blood immunoglobulin M increased [Not Recovered/Not Resolved]
  - Complement factor C3 decreased [Not Recovered/Not Resolved]
  - Complement factor C4 decreased [Not Recovered/Not Resolved]
  - Blood thyroid stimulating hormone decreased [Unknown]
  - Thyroxine free decreased [Unknown]

NARRATIVE: CASE EVENT DATE: 20210701
